FAERS Safety Report 23210351 (Version 2)
Quarter: 2023Q4

REPORT INFORMATION
  Report Type: Report from Study
  Country: CA (occurrence: CA)
  Receive Date: 20231121
  Receipt Date: 20231205
  Transmission Date: 20240110
  Serious: Yes (Hospitalization)
  Sender: FDA-Public Use
  Company Number: CA-TAKEDA-2023TUS110464

PATIENT
  Sex: Female

DRUGS (2)
  1. VEDOLIZUMAB [Suspect]
     Active Substance: VEDOLIZUMAB
     Indication: Gastrointestinal disorder congenital
     Dosage: 300 MILLIGRAM
     Route: 042
     Dates: start: 20210309
  2. VEDOLIZUMAB [Suspect]
     Active Substance: VEDOLIZUMAB
     Indication: Gastrointestinal disorder congenital
     Dosage: 108 MILLIGRAM, Q2WEEKS
     Route: 058
     Dates: start: 20211012

REACTIONS (3)
  - Hospitalisation [Unknown]
  - Off label use [Unknown]
  - No adverse event [Unknown]
